FAERS Safety Report 9193294 (Version 1)
Quarter: 2013Q1

REPORT INFORMATION
  Report Type: Spontaneous
  Country: US (occurrence: None)
  Receive Date: 20130325
  Receipt Date: 20130325
  Transmission Date: 20140127
  Serious: Yes (Other)
  Sender: FDA-Public Use
  Company Number: None

PATIENT
  Age: 41 Year
  Sex: Female
  Weight: 56.7 kg

DRUGS (1)
  1. LEVOFLOXACIN [Suspect]
     Indication: SINUSITIS
     Dosage: 1/DAY 7 DAYS-RX OF 14- PO
     Route: 048
     Dates: start: 20130131, end: 20130206

REACTIONS (12)
  - Pain in extremity [None]
  - Local swelling [None]
  - Muscle spasms [None]
  - Temperature regulation disorder [None]
  - Chills [None]
  - Tremor [None]
  - Insomnia [None]
  - Condition aggravated [None]
  - Gait disturbance [None]
  - Inflammation [None]
  - Activities of daily living impaired [None]
  - Tendonitis [None]
